FAERS Safety Report 8507855-X (Version None)
Quarter: 2012Q3

REPORT INFORMATION
  Report Type: 
  Country: None (occurrence: None)
  Receive Date: 20120713
  Receipt Date: 20120703
  Transmission Date: 20120928
  Serious: Yes (Other)
  Sender: FDA-Public Use
  Company Number: CA-JNJFOC-20120609824

PATIENT
  Sex: Male
  Weight: 73.3 kg

DRUGS (7)
  1. REMICADE [Suspect]
     Dosage: 29TH INFUSION
     Route: 042
     Dates: start: 20120508
  2. DEMEROL [Concomitant]
     Route: 065
  3. METOPROLOL TARTRATE [Concomitant]
     Route: 065
  4. METFORMIN HYDROCHLORIDE [Concomitant]
     Route: 065
  5. EFFEXOR [Concomitant]
     Route: 065
  6. PERINDOPRIL ERBUMINE [Concomitant]
     Route: 065
  7. REMICADE [Suspect]
     Indication: CROHN'S DISEASE
     Route: 042
     Dates: start: 20081021

REACTIONS (5)
  - EYE PAIN [None]
  - EYE SWELLING [None]
  - INTESTINAL RESECTION [None]
  - DIPLOPIA [None]
  - VISION BLURRED [None]
